FAERS Safety Report 5464591-4 (Version None)
Quarter: 2007Q3

REPORT INFORMATION
  Report Type: 
  Country: None (occurrence: None)
  Receive Date: 20070820
  Receipt Date: 20070515
  Transmission Date: 20080115
  Serious: No
  Sender: FDA-Public Use
  Company Number: WAES 0705USA02980

PATIENT
  Age: 72 Year
  Sex: Male
  Weight: 100.6985 kg

DRUGS (2)
  1. JANUVIA [Suspect]
     Indication: DIABETES MELLITUS
     Dosage: 100 MG/DAILY/PO; 50 MG/DAILY/PO
     Route: 048
     Dates: start: 20070401, end: 20070101
  2. JANUVIA [Suspect]
     Indication: DIABETES MELLITUS
     Dosage: 100 MG/DAILY/PO; 50 MG/DAILY/PO
     Route: 048
     Dates: start: 20070101

REACTIONS (2)
  - CHEST DISCOMFORT [None]
  - HYPERSENSITIVITY [None]
